FAERS Safety Report 18678680 (Version 1)
Quarter: 2020Q4

REPORT INFORMATION
  Report Type: Report from Study
  Country: US (occurrence: US)
  Receive Date: 20201229
  Receipt Date: 20201229
  Transmission Date: 20210114
  Serious: No
  Sender: FDA-Public Use
  Company Number: US-CLOVIS ONCOLOGY-CLO-2020-001488

PATIENT
  Age: 64 Year
  Sex: Female

DRUGS (3)
  1. RUBRACA [Suspect]
     Active Substance: RUCAPARIB CAMSYLATE
     Dosage: 600 MILLIGRAM, BID
     Route: 048
     Dates: start: 20200807
  2. RUBRACA [Suspect]
     Active Substance: RUCAPARIB CAMSYLATE
     Indication: OVARIAN CANCER
     Dosage: 600 MG, BID
     Route: 048
     Dates: start: 20200807, end: 2020
  3. RUBRACA [Suspect]
     Active Substance: RUCAPARIB CAMSYLATE
     Dosage: 300 MILLIGRAM, QD
     Route: 048
     Dates: start: 2020

REACTIONS (16)
  - Constipation [Not Recovered/Not Resolved]
  - Fatigue [Unknown]
  - Feeding disorder [Unknown]
  - Faeces hard [Not Recovered/Not Resolved]
  - Eructation [Unknown]
  - Taste disorder [Unknown]
  - Nausea [Not Recovered/Not Resolved]
  - Flatulence [Unknown]
  - Chest pain [Unknown]
  - Contusion [Unknown]
  - Platelet count decreased [Unknown]
  - Liver function test increased [Unknown]
  - Abdominal distension [Unknown]
  - Dyspepsia [Unknown]
  - Depressed mood [Unknown]
  - Gastrooesophageal reflux disease [Unknown]

NARRATIVE: CASE EVENT DATE: 2020
